FAERS Safety Report 8204620-8 (Version None)
Quarter: 2012Q1

REPORT INFORMATION
  Report Type: 
  Country: None (occurrence: None)
  Receive Date: 20120313
  Receipt Date: 20120305
  Transmission Date: 20120608
  Serious: Yes (Hospitalization)
  Sender: FDA-Public Use
  Company Number: FR-JNJFOC-20120304256

PATIENT
  Sex: Female

DRUGS (18)
  1. METFORMIN HCL [Concomitant]
     Route: 048
  2. LYRICA [Concomitant]
     Route: 048
  3. ATORVASTATIN [Concomitant]
     Route: 048
  4. MOTILIUM [Suspect]
     Indication: ILL-DEFINED DISORDER
     Route: 048
     Dates: start: 20111214, end: 20111228
  5. IMODIUM [Suspect]
     Route: 048
  6. IMODIUM [Suspect]
     Indication: PRODUCT USED FOR UNKNOWN INDICATION
     Route: 048
     Dates: start: 20111219, end: 20111227
  7. LEVOFLOXACIN [Suspect]
     Indication: ANTIBIOTIC THERAPY
     Route: 048
     Dates: start: 20111214, end: 20111229
  8. FERROUS SULFATE TAB [Suspect]
     Indication: ILL-DEFINED DISORDER
     Route: 048
     Dates: start: 20111216, end: 20111227
  9. KERLONE [Concomitant]
     Route: 048
  10. PLAVIX [Concomitant]
     Route: 048
  11. LORAZEPAM [Concomitant]
     Route: 048
  12. RIFADIN [Suspect]
     Indication: ANTIBIOTIC THERAPY
     Route: 048
     Dates: start: 20111219, end: 20111227
  13. INSULIN [Concomitant]
     Route: 048
  14. PRAMIPEXOLE DIHYDROCHLORIDE [Concomitant]
     Route: 048
  15. LOVENOX [Suspect]
     Indication: ILL-DEFINED DISORDER
     Route: 058
     Dates: start: 20111214, end: 20111228
  16. OXOMEMAZINE [Suspect]
     Indication: ILL-DEFINED DISORDER
     Route: 048
     Dates: start: 20111218, end: 20111225
  17. LEVOTHYROXINE SODIUM [Concomitant]
     Route: 048
  18. GENTAMICIN [Concomitant]
     Indication: ANTIBIOTIC THERAPY
     Route: 065
     Dates: start: 20111214, end: 20111218

REACTIONS (7)
  - RENAL FAILURE [None]
  - EOSINOPHILIA [None]
  - BLOOD ALKALINE PHOSPHATASE INCREASED [None]
  - GAMMA-GLUTAMYLTRANSFERASE INCREASED [None]
  - ASPARTATE AMINOTRANSFERASE INCREASED [None]
  - PRURITUS [None]
  - ALANINE AMINOTRANSFERASE INCREASED [None]
